FAERS Safety Report 20743527 (Version 1)
Quarter: 2022Q2

REPORT INFORMATION
  Report Type: Spontaneous
  Country: US (occurrence: None)
  Receive Date: 20220425
  Receipt Date: 20220425
  Transmission Date: 20220720
  Serious: Yes (Other)
  Sender: FDA-Public Use
  Company Number: US-ROCHE-3080978

PATIENT
  Age: 65 Year
  Sex: Female

DRUGS (2)
  1. XELODA [Suspect]
     Active Substance: CAPECITABINE
     Indication: Breast cancer metastatic
     Dosage: 14 DAYS ON 7 DAYS OFF ;ONGOING: NO
     Route: 048
     Dates: start: 20201008, end: 20210520
  2. CARBOPLATIN\PACLITAXEL [Concomitant]
     Active Substance: CARBOPLATIN\PACLITAXEL

REACTIONS (2)
  - Back pain [Recovered/Resolved]
  - Malignant neoplasm progression [Not Recovered/Not Resolved]

NARRATIVE: CASE EVENT DATE: 20210501
